FAERS Safety Report 10684406 (Version 2)
Quarter: 2015Q1

REPORT INFORMATION
  Report Type: Spontaneous
  Country: US (occurrence: None)
  Receive Date: 20141229
  Receipt Date: 20150309
  Transmission Date: 20150720
  Serious: Yes (Hospitalization)
  Sender: FDA-Public Use
  Company Number: 2014-21048

PATIENT
  Sex: Female

DRUGS (1)
  1. EYLEA [Suspect]
     Active Substance: AFLIBERCEPT
     Indication: AGE-RELATED MACULAR DEGENERATION
     Dosage: EVERY 4-6 WEEKS
     Route: 031
     Dates: start: 201405

REACTIONS (15)
  - Dyspnoea [None]
  - Gait disturbance [None]
  - Decreased appetite [None]
  - Asthenia [None]
  - Pain in extremity [None]
  - Hyponatraemia [None]
  - Chest discomfort [None]
  - Oedema peripheral [None]
  - Hypokalaemia [None]
  - Heart rate decreased [None]
  - Anxiety [None]
  - Tension [None]
  - Nervousness [None]
  - Dysphagia [None]
  - Fluid retention [None]
